FAERS Safety Report 8339576-0 (Version None)
Quarter: 2012Q2

REPORT INFORMATION
  Report Type: 
  Country: None (occurrence: None)
  Receive Date: 20120507
  Receipt Date: 20120502
  Transmission Date: 20120825
  Serious: Yes (Other)
  Sender: FDA-Public Use
  Company Number: PHEH2012US009383

PATIENT
  Sex: Male

DRUGS (10)
  1. TOBI [Suspect]
     Indication: CYSTIC FIBROSIS
     Dosage: 300 MG, BID*1MO
  2. SPIRIVA [Concomitant]
  3. CIPROFLOXACIN HCL [Concomitant]
  4. OMEPRAZOLE [Concomitant]
  5. EXFORGE [Concomitant]
  6. AZITHROMYCIN [Concomitant]
  7. ITRACONAZOLE [Concomitant]
  8. RIFAMPIN [Concomitant]
  9. ADVAIR DISKUS 100/50 [Concomitant]
  10. MULTI-VITAMINS [Concomitant]

REACTIONS (4)
  - PLEURISY [None]
  - COUGH [None]
  - CHEST PAIN [None]
  - DYSPNOEA [None]
